FAERS Safety Report 6176375-2 (Version None)
Quarter: 2009Q2

REPORT INFORMATION
  Report Type: 
  Country: None (occurrence: None)
  Receive Date: 20090501
  Receipt Date: 20090424
  Transmission Date: 20091009
  Serious: Yes (Hospitalization)
  Sender: FDA-Public Use
  Company Number: JP-ABBOTT-09P-087-0565157-00

PATIENT
  Sex: Male
  Weight: 46 kg

DRUGS (11)
  1. KLARICID [Suspect]
     Indication: BRONCHITIS
     Route: 048
     Dates: start: 20090321, end: 20090324
  2. AMARYL [Suspect]
     Indication: DIABETES MELLITUS
     Route: 048
     Dates: start: 20051101, end: 20090324
  3. FASTIC [Suspect]
     Indication: DIABETES MELLITUS
     Route: 048
     Dates: start: 20051101
  4. ARICEPT [Concomitant]
     Indication: DEMENTIA
     Route: 048
     Dates: start: 20070830
  5. SINGULAIR [Concomitant]
     Indication: ASTHMA
     Route: 048
     Dates: start: 20051101
  6. ASPIRIN [Concomitant]
     Indication: CEREBRAL INFARCTION
     Route: 048
     Dates: start: 20051101
  7. ASPIRIN [Concomitant]
     Indication: PROPHYLAXIS
  8. MAGLAX [Concomitant]
     Indication: CONSTIPATION
     Route: 048
     Dates: start: 20080313
  9. YOKUKAN-SAN [Concomitant]
     Indication: DEMENTIA
     Route: 048
     Dates: start: 20070830
  10. ASTOMARI [Concomitant]
     Indication: BRONCHITIS
     Route: 048
     Dates: start: 20090321, end: 20090321
  11. MUCODYNE [Concomitant]
     Indication: BRONCHITIS
     Route: 048
     Dates: start: 20090321, end: 20090321

REACTIONS (2)
  - HYPOGLYCAEMIA [None]
  - LOSS OF CONSCIOUSNESS [None]
